FAERS Safety Report 11279422 (Version 1)
Quarter: 2015Q3

REPORT INFORMATION
  Report Type: Report from Study
  Country: ES (occurrence: AR)
  Receive Date: 20150717
  Receipt Date: 20150717
  Transmission Date: 20151125
  Serious: Yes (Death, Other)
  Sender: FDA-Public Use
  Company Number: ES-TEVA-579079ISR

PATIENT
  Age: 60 Year
  Sex: Female

DRUGS (4)
  1. GENOXAL (CYCLOPHOSPHAMIDE-BAXTER) [Concomitant]
     Dates: start: 20141212
  2. DOXORUBICIN [Concomitant]
     Active Substance: DOXORUBICIN
     Dates: start: 20141212
  3. VINCRISTINA TEVA 1 MG/ML SOLUCION INYECTABLE EFG, 1 VIAL DE 2ML [Suspect]
     Active Substance: VINCRISTINE
     Indication: NEOPLASM MALIGNANT
     Dosage: CYCLE#6 (LAST CYCLE BEFORE EVENT)
     Route: 051
     Dates: start: 20141212
  4. PREDNISONE. [Concomitant]
     Active Substance: PREDNISONE
     Dates: start: 20141211, end: 20141215

REACTIONS (2)
  - Septic shock [Fatal]
  - Pyelonephritis [Fatal]

NARRATIVE: CASE EVENT DATE: 20141218
